FAERS Safety Report 14345558 (Version 1)
Quarter: 2017Q4

REPORT INFORMATION
  Report Type: Spontaneous
  Country: US (occurrence: US)
  Receive Date: 20171230
  Receipt Date: 20171230
  Transmission Date: 20180321
  Serious: No
  Sender: FDA-Public Use
  Company Number: None

PATIENT
  Age: 34 Year
  Sex: Female

DRUGS (1)
  1. HAEGARDA [Suspect]
     Active Substance: HUMAN C1-ESTERASE INHIBITOR
     Indication: HEREDITARY ANGIOEDEMA
     Dosage: 6000 UNITS  TWICE A WEEK (EVERY 3 TO 4 DAYS)
     Route: 058
     Dates: start: 20170824

REACTIONS (1)
  - Device breakage [None]

NARRATIVE: CASE EVENT DATE: 20171208
